FAERS Safety Report 7214314-3 (Version None)
Quarter: 2011Q1

REPORT INFORMATION
  Report Type: 
  Country: None (occurrence: None)
  Receive Date: 20110107
  Receipt Date: 20101227
  Transmission Date: 20110831
  Serious: Yes (Other)
  Sender: FDA-Public Use
  Company Number: PHHY2010DE82197

PATIENT
  Sex: Female

DRUGS (6)
  1. ARIMIDEX [Concomitant]
     Dosage: UNK
     Dates: start: 20060508, end: 20061001
  2. AROMASIN [Concomitant]
     Dosage: UNK
     Dates: start: 20061013, end: 20070326
  3. ZOMETA [Suspect]
     Dosage: UNK
     Route: 042
     Dates: start: 20081101
  4. HERCEPTIN [Concomitant]
     Dosage: UNK
     Dates: start: 20061027, end: 20070614
  5. XELODA [Concomitant]
     Dosage: UNK
     Dates: start: 20061027, end: 20070614
  6. ZOMETA [Suspect]
     Indication: METASTASES TO BONE
     Dosage: 4 MG EVERY 4 WEEKS
     Route: 042
     Dates: start: 20060728, end: 20070803

REACTIONS (3)
  - BONE SWELLING [None]
  - OSTEONECROSIS OF JAW [None]
  - STOMATITIS [None]
